FAERS Safety Report 24322214 (Version 1)
Quarter: 2024Q3

REPORT INFORMATION
  Report Type: Spontaneous
  Country: CL (occurrence: CL)
  Receive Date: 20240916
  Receipt Date: 20240916
  Transmission Date: 20241016
  Serious: Yes (Other)
  Sender: GLAXOSMITHKLINE
  Company Number: CL-GLAXOSMITHKLINE-CL2024AMR112908

PATIENT

DRUGS (1)
  1. BELIMUMAB [Suspect]
     Active Substance: BELIMUMAB
     Indication: Systemic lupus erythematosus
     Dosage: 400 MG
     Dates: start: 20230104

REACTIONS (3)
  - Finger deformity [Unknown]
  - Fibromyalgia [Unknown]
  - Rheumatoid arthritis [Unknown]
